FAERS Safety Report 7203851-3 (Version None)
Quarter: 2010Q4

REPORT INFORMATION
  Report Type: 
  Country: None (occurrence: None)
  Receive Date: 20101230
  Receipt Date: 20101220
  Transmission Date: 20110411
  Serious: Yes (Hospitalization)
  Sender: FDA-Public Use
  Company Number: FR-JNJFOC-20101207344

PATIENT
  Age: 16 Year
  Sex: Female

DRUGS (10)
  1. REMICADE [Suspect]
     Indication: CROHN'S DISEASE
     Route: 042
  2. REMICADE [Suspect]
     Route: 042
  3. REMICADE [Suspect]
     Dosage: WEEK 6
     Route: 042
  4. REMICADE [Suspect]
     Dosage: WEEK 0
     Route: 042
  5. REMICADE [Suspect]
     Dosage: WEEK 0
     Route: 042
  6. REMICADE [Suspect]
     Dosage: WEEK 2
     Route: 042
  7. REMICADE [Suspect]
     Dosage: WEEK 0
     Route: 042
  8. SOLUPRED [Suspect]
     Indication: CROHN'S DISEASE
     Route: 048
  9. SOLUPRED [Suspect]
     Route: 048
  10. IMUREL [Suspect]
     Indication: CROHN'S DISEASE
     Route: 048

REACTIONS (1)
  - LATENT TUBERCULOSIS [None]
